FAERS Safety Report 6280193-4 (Version None)
Quarter: 2009Q3

REPORT INFORMATION
  Report Type: 
  Country: None (occurrence: None)
  Receive Date: 20090723
  Receipt Date: 20090715
  Transmission Date: 20100115
  Serious: Yes (Hospitalization, Other)
  Sender: FDA-Public Use
  Company Number: US-AMGEN-QUU356013

PATIENT
  Sex: Female

DRUGS (1)
  1. ENBREL [Suspect]
     Indication: JUVENILE ARTHRITIS
     Route: 058
     Dates: start: 20061128

REACTIONS (7)
  - COAGULATION FACTOR XIII LEVEL ABNORMAL [None]
  - INJECTION SITE PAIN [None]
  - PLATELET FUNCTION TEST ABNORMAL [None]
  - UTERINE HAEMORRHAGE [None]
  - VAGINAL DISCHARGE [None]
  - VAGINAL HAEMORRHAGE [None]
  - VITAMIN B12 ABNORMAL [None]
